FAERS Safety Report 5583387-6 (Version None)
Quarter: 2008Q1

REPORT INFORMATION
  Report Type: 
  Country: None (occurrence: None)
  Receive Date: 20080107
  Receipt Date: 20071226
  Transmission Date: 20080703
  Serious: Yes (Hospitalization, Other)
  Sender: FDA-Public Use
  Company Number: US-PFIZER INC-2007107552

PATIENT
  Sex: Female
  Weight: 60.9 kg

DRUGS (6)
  1. CHANTIX [Suspect]
     Indication: SMOKING CESSATION THERAPY
     Dates: start: 20071201, end: 20071201
  2. ACTIVIA [Suspect]
     Indication: CONSTIPATION
  3. SYNTHROID [Concomitant]
  4. LIPITOR [Concomitant]
  5. IMIPRAMINE [Concomitant]
  6. DIAZEPAM [Concomitant]

REACTIONS (12)
  - ABDOMINAL PAIN [None]
  - ANOREXIA [None]
  - CHEST PAIN [None]
  - CONSTIPATION [None]
  - DIARRHOEA [None]
  - GASTROINTESTINAL DISORDER [None]
  - JOINT SWELLING [None]
  - MALAISE [None]
  - NAUSEA [None]
  - STRESS [None]
  - URTICARIA [None]
  - VOMITING [None]
